FAERS Safety Report 8447920 (Version 8)
Quarter: 2012Q4

REPORT INFORMATION
  Report Type: 
  Country: US (occurrence: US)
  Receive Date: 20120308
  Receipt Date: 20121024
  Transmission Date: 20130627
  Serious: Yes (Hospitalization, Other)
  Sender: FDA-Public Use
  Company Number: US-009507513-1203USA00787

PATIENT

DRUGS (3)
  1. FOSAMAX [Suspect]
     Indication: OSTEOPENIA
     Dosage: 70 mg, UNK
     Route: 048
     Dates: start: 20010720, end: 200908
  2. SYNTHROID [Concomitant]
     Indication: HYPOTHYROIDISM
     Dosage: UNK mg, UNK
     Route: 048
     Dates: start: 2000
  3. ESTROGENS (UNSPECIFIED) [Concomitant]
     Dosage: UNK
     Dates: start: 2000, end: 2010

REACTIONS (33)
  - Femur fracture [Unknown]
  - Device failure [Unknown]
  - Fracture nonunion [Recovered/Resolved]
  - Tonsillectomy [Unknown]
  - Dizziness [Unknown]
  - Pain in extremity [Unknown]
  - Fall [Unknown]
  - Mitral valve prolapse [Unknown]
  - Osteoarthritis [Unknown]
  - Muscle strain [Recovering/Resolving]
  - Meniscus injury [Unknown]
  - Patellofemoral pain syndrome [Unknown]
  - Osteoma [Unknown]
  - Osteoarthritis [Unknown]
  - Cataract [Unknown]
  - Cataract [Unknown]
  - Pain in extremity [Unknown]
  - Pain in extremity [Unknown]
  - Arthralgia [Recovering/Resolving]
  - Arthritis [Unknown]
  - Abscess oral [Unknown]
  - Arthralgia [Unknown]
  - Gout [Unknown]
  - Palpitations [Recovered/Resolved]
  - Abdominal pain [Unknown]
  - Menopausal symptoms [Unknown]
  - Ligament sprain [Unknown]
  - Muscle strain [Unknown]
  - Carpal tunnel syndrome [Unknown]
  - Haemorrhoids [Unknown]
  - Large intestine polyp [Unknown]
  - Open reduction of fracture [Unknown]
  - Renal failure chronic [Not Recovered/Not Resolved]
